FAERS Safety Report 5266640-5 (Version None)
Quarter: 2007Q1

REPORT INFORMATION
  Report Type: 
  Country: None (occurrence: None)
  Receive Date: 20070312
  Receipt Date: 20070216
  Transmission Date: 20070707
  Serious: Yes (Death, Hospitalization)
  Sender: FDA-Public Use
  Company Number: 0610009

PATIENT
  Age: 8 Year
  Sex: Male
  Weight: 22.2263 kg

DRUGS (1)
  1. ORFADIN [Suspect]
     Indication: TYROSINAEMIA
     Dosage: 20 MILLIGRAM A DAY; ORAL
     Route: 048
     Dates: start: 20020114, end: 20060317

REACTIONS (5)
  - CYANOSIS [None]
  - HYPOTONIA [None]
  - PORTAL HYPERTENSION [None]
  - SCROTAL SWELLING [None]
  - VARICES OESOPHAGEAL [None]
